FAERS Safety Report 5239461-7 (Version None)
Quarter: 2007Q1

REPORT INFORMATION
  Report Type: 
  Country: None (occurrence: None)
  Receive Date: 20070216
  Receipt Date: 20070212
  Transmission Date: 20070707
  Serious: Yes (Hospitalization)
  Sender: FDA-Public Use
  Company Number: FR-JNJFOC-20070202802

PATIENT
  Age: 65 Year
  Sex: Male

DRUGS (3)
  1. RISPERDAL [Suspect]
     Indication: OLIGODENDROGLIOMA
     Route: 048
  2. LARGACTIL [Suspect]
     Indication: OLIGODENDROGLIOMA
  3. DEPAMIDE 300 [Suspect]
     Indication: OLIGODENDROGLIOMA

REACTIONS (2)
  - DERMATITIS BULLOUS [None]
  - TOXIC SKIN ERUPTION [None]
